FAERS Safety Report 12654072 (Version 2)
Quarter: 2016Q3

REPORT INFORMATION
  Report Type: Spontaneous
  Country: IL (occurrence: IL)
  Receive Date: 20160816
  Receipt Date: 20160826
  Transmission Date: 20161109
  Serious: Yes (Hospitalization, Other)
  Sender: FDA-Public Use
  Company Number: IL-AMGEN-ISRSP2016079623

PATIENT
  Age: 56 Year
  Sex: Female

DRUGS (2)
  1. NORMITEN [Concomitant]
     Active Substance: ATENOLOL
     Indication: CARDIAC DISORDER
     Dosage: UNK
  2. ENBREL [Suspect]
     Active Substance: ETANERCEPT
     Indication: PSORIATIC ARTHROPATHY
     Dosage: 50 MG, WEEKLY
     Route: 058
     Dates: start: 20160529

REACTIONS (4)
  - Visual field defect [Unknown]
  - Hemianopia [Unknown]
  - Eye disorder [Unknown]
  - Oxygen saturation abnormal [Unknown]
